FAERS Safety Report 7770703-X (Version None)
Quarter: 2011Q3

REPORT INFORMATION
  Report Type: 
  Country: None (occurrence: None)
  Receive Date: 20110922
  Receipt Date: 20110419
  Transmission Date: 20111222
  Serious: No
  Sender: FDA-Public Use
  Company Number: US-ASTRAZENECA-2011SE15400

PATIENT
  Age: 471 Month
  Sex: Female
  Weight: 77.1 kg

DRUGS (3)
  1. SEROQUEL XR [Suspect]
     Route: 048
  2. SEROQUEL XR [Suspect]
     Indication: BIPOLAR DISORDER
     Route: 048
     Dates: start: 20110201, end: 20110309
  3. LITHIUM CARBONATE [Concomitant]
     Dosage: AT NIGHT

REACTIONS (11)
  - CARDIAC DISORDER [None]
  - ANXIETY [None]
  - INSOMNIA [None]
  - MENTAL IMPAIRMENT [None]
  - WEIGHT INCREASED [None]
  - DRUG DOSE OMISSION [None]
  - HUNGER [None]
  - THERAPEUTIC RESPONSE UNEXPECTED [None]
  - NAUSEA [None]
  - IRRITABILITY [None]
  - DIZZINESS [None]
